FAERS Safety Report 5263760-6 (Version None)
Quarter: 2007Q1

REPORT INFORMATION
  Report Type: 
  Country: None (occurrence: None)
  Receive Date: 20061213
  Receipt Date: 20031111
  Transmission Date: 20070707
  Serious: Yes (Other)
  Sender: FDA-Public Use
  Company Number: 2003UW12630

PATIENT
  Age: 62 Year
  Sex: Female
  Weight: 81.6475 kg

DRUGS (12)
  1. IRESSA [Suspect]
     Indication: NON-SMALL CELL LUNG CANCER
     Dosage: 250 MG DAILY PO
     Route: 048
     Dates: start: 20030407
  2. QUININE [Concomitant]
  3. SYNTHROID [Concomitant]
  4. PREMARIN [Concomitant]
  5. PROVERA [Concomitant]
  6. ASPIRIN [Concomitant]
  7. POTASSIUM ACETATE [Concomitant]
  8. CLONOPIN [Concomitant]
  9. HYDROCHLOROTHIAZIDE [Concomitant]
  10. IMODIUM [Concomitant]
  11. ASPIRIN [Concomitant]
  12. VITAMIN E [Concomitant]

REACTIONS (3)
  - ALOPECIA [None]
  - DIARRHOEA [None]
  - MUSCLE SPASMS [None]
